FAERS Safety Report 7061318-X (Version None)
Quarter: 2010Q4

REPORT INFORMATION
  Report Type: 
  Country: None (occurrence: None)
  Receive Date: 20101026
  Receipt Date: 20101014
  Transmission Date: 20110411
  Serious: Yes (Hospitalization, Other)
  Sender: FDA-Public Use
  Company Number: US-BAYER-201011602NA

PATIENT
  Age: 27 Year
  Sex: Female
  Weight: 110 kg

DRUGS (6)
  1. YAZ [Suspect]
     Indication: CONTRACEPTION
     Route: 048
     Dates: start: 20090201, end: 20100501
  2. YASMIN [Suspect]
     Indication: PRODUCT USED FOR UNKNOWN INDICATION
     Route: 048
  3. PROPYLTHIOURACIL [Concomitant]
     Indication: HYPERTHYROIDISM
     Dates: start: 20070201
  4. OMEPRAZOLE [Concomitant]
     Route: 048
  5. EFFEXOR [Concomitant]
  6. CELEXA [Concomitant]

REACTIONS (13)
  - ABDOMINAL PAIN UPPER [None]
  - ANAEMIA [None]
  - ASTHENIA [None]
  - BILIARY COLIC [None]
  - CHEST DISCOMFORT [None]
  - CHOLECYSTITIS [None]
  - CONSTIPATION [None]
  - DYSPEPSIA [None]
  - EPIGASTRIC DISCOMFORT [None]
  - FATIGUE [None]
  - GASTROINTESTINAL HAEMORRHAGE [None]
  - PANCREATITIS ACUTE [None]
  - VOMITING [None]
